FAERS Safety Report 6293328-4 (Version None)
Quarter: 2009Q3

REPORT INFORMATION
  Report Type: 
  Country: None (occurrence: None)
  Receive Date: 20090731
  Receipt Date: 20090722
  Transmission Date: 20100115
  Serious: Yes (Other)
  Sender: FDA-Public Use
  Company Number: PHHY2009DE30888

PATIENT
  Sex: Male

DRUGS (1)
  1. ACLASTA [Suspect]
     Indication: OSTEITIS DEFORMANS
     Dosage: 5 MG, UNK
     Route: 042
     Dates: start: 20080701

REACTIONS (7)
  - HEPATIC STEATOSIS [None]
  - HEPATOMEGALY [None]
  - IMMOBILE [None]
  - JAUNDICE [None]
  - LIVER DISORDER [None]
  - TRANSAMINASES INCREASED [None]
  - WEIGHT INCREASED [None]
